FAERS Safety Report 6867190-2 (Version None)
Quarter: 2010Q3

REPORT INFORMATION
  Report Type: 
  Country: None (occurrence: None)
  Receive Date: 20100722
  Receipt Date: 20100715
  Transmission Date: 20110219
  Serious: Yes (Hospitalization, Other)
  Sender: FDA-Public Use
  Company Number: B0660644A

PATIENT
  Sex: Female
  Weight: 55 kg

DRUGS (5)
  1. IMIJECT [Suspect]
     Indication: PRODUCT USED FOR UNKNOWN INDICATION
     Route: 065
  2. RIVOTRIL [Concomitant]
  3. PARACETAMOL [Concomitant]
  4. VENTOLIN [Concomitant]
  5. DEROXAT [Concomitant]

REACTIONS (15)
  - ANGIOPATHY [None]
  - ANXIETY [None]
  - BURNING SENSATION [None]
  - COMA [None]
  - DEVICE FAILURE [None]
  - DEVICE LEAKAGE [None]
  - ERYTHEMA [None]
  - FALL [None]
  - FLUSHING [None]
  - LOSS OF CONSCIOUSNESS [None]
  - PARALYSIS [None]
  - PRODUCT QUALITY ISSUE [None]
  - PYREXIA [None]
  - SYRINGE ISSUE [None]
  - THROAT TIGHTNESS [None]
